FAERS Safety Report 8282464-9 (Version None)
Quarter: 2012Q2

REPORT INFORMATION
  Report Type: 
  Country: None (occurrence: None)
  Receive Date: 20120413
  Receipt Date: 20120411
  Transmission Date: 20120825
  Serious: Yes (Other)
  Sender: FDA-Public Use
  Company Number: US-PFIZER INC-2012049970

PATIENT
  Sex: Female
  Weight: 57.6 kg

DRUGS (16)
  1. SYMBICORT [Concomitant]
     Indication: CHRONIC OBSTRUCTIVE PULMONARY DISEASE
  2. XANAX [Concomitant]
     Indication: ANXIETY
     Dosage: 1 MG, 3X/DAY
  3. REMERON [Concomitant]
     Indication: DEPRESSION
     Dosage: 50 MG, UNK
  4. CHANTIX [Suspect]
     Dosage: UNK
     Route: 048
     Dates: end: 20120301
  5. OXYGEN [Concomitant]
     Indication: CHRONIC OBSTRUCTIVE PULMONARY DISEASE
  6. LIPITOR [Concomitant]
     Dosage: 20 MG, UNK
  7. SYMBICORT [Concomitant]
     Indication: ASTHMA
  8. ALBUTEROL [Concomitant]
     Indication: CHRONIC OBSTRUCTIVE PULMONARY DISEASE
  9. VITAMIN D [Concomitant]
     Dosage: 5000 IU, 1X/DAY
  10. ALBUTEROL [Concomitant]
     Indication: ASTHMA
  11. OXYGEN [Concomitant]
     Indication: EMPHYSEMA
     Dosage: UNK
  12. CHANTIX [Suspect]
     Dosage: 0.5 MG, 1X/DAY
     Route: 048
     Dates: start: 20120221
  13. ALBUTEROL [Concomitant]
     Indication: EMPHYSEMA
     Dosage: UNK, AS NEEDED
  14. OXYGEN [Concomitant]
     Indication: ASTHMA
  15. CHANTIX [Suspect]
     Indication: SMOKING CESSATION THERAPY
     Dosage: 0.5 MG, 1X/DAY
     Route: 048
     Dates: start: 20070101, end: 20070101
  16. SYMBICORT [Concomitant]
     Indication: EMPHYSEMA
     Dosage: 160/4.5 MG, 2X/DAY

REACTIONS (13)
  - LOW DENSITY LIPOPROTEIN ABNORMAL [None]
  - LIP BLISTER [None]
  - HIGH DENSITY LIPOPROTEIN ABNORMAL [None]
  - DRUG INEFFECTIVE [None]
  - MALAISE [None]
  - FEELING ABNORMAL [None]
  - ASTHENIA [None]
  - INSOMNIA [None]
  - ABNORMAL DREAMS [None]
  - NIGHTMARE [None]
  - DRUG INTOLERANCE [None]
  - LUNG DISORDER [None]
  - SWELLING FACE [None]
